FAERS Safety Report 23708135 (Version 1)
Quarter: 2024Q2

REPORT INFORMATION
  Report Type: Spontaneous
  Country: US (occurrence: None)
  Receive Date: 20240404
  Receipt Date: 20240404
  Transmission Date: 20240715
  Serious: Yes (Hospitalization)
  Sender: FDA-Public Use
  Company Number: None

PATIENT
  Age: 66 Year
  Sex: Female

DRUGS (10)
  1. PIRFENIDONE [Suspect]
     Active Substance: PIRFENIDONE
     Indication: Product used for unknown indication
     Dosage: FREQUENCY : 3 TIMES A DAY;?
     Route: 048
     Dates: start: 202402
  2. CYCLOBENZAPRINE [Concomitant]
     Active Substance: CYCLOBENZAPRINE
  3. VITAMIN B12 [Concomitant]
     Active Substance: CYANOCOBALAMIN
  4. FOLIC ACID [Concomitant]
     Active Substance: FOLIC ACID
  5. AMLODIPINE BESYLATE [Concomitant]
     Active Substance: AMLODIPINE BESYLATE
  6. ATORVASTATIN CALCIUM [Concomitant]
     Active Substance: ATORVASTATIN CALCIUM
  7. IBUPROFEN [Concomitant]
     Active Substance: IBUPROFEN
  8. PROCHLORPERAZINE [Concomitant]
     Active Substance: PROCHLORPERAZINE
  9. DEXAMETHASONE [Concomitant]
     Active Substance: DEXAMETHASONE
  10. OFEV [Concomitant]
     Active Substance: NINTEDANIB

REACTIONS (12)
  - Rash [None]
  - Skin exfoliation [None]
  - Vaginal haemorrhage [None]
  - Lip blister [None]
  - Lip haemorrhage [None]
  - Epistaxis [None]
  - Sinus disorder [None]
  - Eye irritation [None]
  - Ocular hyperaemia [None]
  - Oropharyngeal pain [None]
  - Lymphadenopathy [None]
  - Therapy cessation [None]

NARRATIVE: CASE EVENT DATE: 20240314
